FAERS Safety Report 13257881 (Version 4)
Quarter: 2018Q4

REPORT INFORMATION
  Report Type: Spontaneous
  Country: US (occurrence: US)
  Receive Date: 20170221
  Receipt Date: 20181026
  Transmission Date: 20190204
  Serious: No
  Sender: FDA-Public Use
  Company Number: US-ACTELION-A-US2016-139002

PATIENT
  Age: 68 Year
  Sex: Female

DRUGS (9)
  1. DIPHENIDOL HCL AMEL [Concomitant]
  2. FUROSEMIDE. [Concomitant]
     Active Substance: FUROSEMIDE
  3. DANAZOL. [Concomitant]
     Active Substance: DANAZOL
  4. OPSUMIT [Suspect]
     Active Substance: MACITENTAN
     Indication: PULMONARY ARTERIAL HYPERTENSION
     Dosage: 10 MG, QD
     Route: 048
     Dates: start: 20160615, end: 201810
  5. AMLODIPINE BESILATE [Concomitant]
     Active Substance: AMLODIPINE BESYLATE
  6. OPSUMIT [Suspect]
     Active Substance: MACITENTAN
     Dosage: 10 MG, QD
     Route: 048
     Dates: start: 20161208
  7. IRON [Concomitant]
     Active Substance: IRON
  8. OXYGEN. [Concomitant]
     Active Substance: OXYGEN
  9. ENALAPRIL [Concomitant]
     Active Substance: ENALAPRIL

REACTIONS (11)
  - Product dose omission [Not Recovered/Not Resolved]
  - Hordeolum [Unknown]
  - Visual impairment [Unknown]
  - Fluid retention [Not Recovered/Not Resolved]
  - Dyspnoea exertional [Not Recovered/Not Resolved]
  - Feeling abnormal [Unknown]
  - Headache [Unknown]
  - Dyspnoea [Recovering/Resolving]
  - Decreased appetite [Unknown]
  - Eye irritation [Unknown]
  - Inappropriate schedule of product administration [Not Recovered/Not Resolved]

NARRATIVE: CASE EVENT DATE: 20160628
